FAERS Safety Report 7111002-9 (Version None)
Quarter: 2010Q4

REPORT INFORMATION
  Report Type: 
  Country: None (occurrence: None)
  Receive Date: 20101118
  Receipt Date: 20101111
  Transmission Date: 20110411
  Serious: Yes (Hospitalization)
  Sender: FDA-Public Use
  Company Number: US-US-EMD SERONO, INC.-7027253

PATIENT
  Sex: Female

DRUGS (1)
  1. REBIF [Suspect]
     Indication: PRODUCT USED FOR UNKNOWN INDICATION
     Route: 058
     Dates: start: 20061013

REACTIONS (7)
  - ABDOMINAL ADHESIONS [None]
  - DYSURIA [None]
  - ENDOMETRIOSIS [None]
  - HEADACHE [None]
  - INJECTION SITE HAEMATOMA [None]
  - MICTURITION URGENCY [None]
  - PELVIC PAIN [None]
